FAERS Safety Report 7961634-0 (Version None)
Quarter: 2011Q4

REPORT INFORMATION
  Report Type: 
  Country: None (occurrence: None)
  Receive Date: 20111207
  Receipt Date: 20111128
  Transmission Date: 20120403
  Serious: Yes (Hospitalization)
  Sender: FDA-Public Use
  Company Number: US-PURDUE-USA-2011-0071645

PATIENT
  Age: 68 Year
  Sex: Male
  Weight: 71.202 kg

DRUGS (22)
  1. NAPROXEN [Suspect]
     Indication: OSTEOARTHRITIS
     Dosage: UNK
     Dates: start: 20081030, end: 20110125
  2. PLACEBO [Suspect]
     Indication: RHEUMATOID ARTHRITIS
  3. VICODIN [Suspect]
     Indication: PRODUCT USED FOR UNKNOWN INDICATION
     Dosage: 2 TABLET, Q3H
     Dates: start: 20110418, end: 20110420
  4. CELECOXIB [Suspect]
     Indication: RHEUMATOID ARTHRITIS
  5. NEXIUM [Concomitant]
     Indication: PRODUCT USED FOR UNKNOWN INDICATION
     Dosage: UNK
     Dates: start: 20081030
  6. NITROGLYCERIN [Concomitant]
     Indication: PRODUCT USED FOR UNKNOWN INDICATION
     Dosage: UNK
     Dates: start: 20050806
  7. ALTACE [Concomitant]
     Indication: PRODUCT USED FOR UNKNOWN INDICATION
     Dosage: UNK
     Dates: start: 20090625
  8. ZOLOFT [Concomitant]
     Dosage: UNK
     Dates: start: 20050806
  9. PLAVIX [Concomitant]
     Indication: PRODUCT USED FOR UNKNOWN INDICATION
     Dosage: UNK
     Dates: start: 20050806
  10. RESTORIL                           /00393701/ [Concomitant]
     Indication: PRODUCT USED FOR UNKNOWN INDICATION
     Dosage: UNK
     Dates: start: 20050806
  11. OXYCONTIN [Suspect]
     Indication: PRODUCT USED FOR UNKNOWN INDICATION
     Dosage: 5 MG, Q3H
     Route: 048
     Dates: start: 20110418, end: 20110420
  12. NAPROXEN [Suspect]
     Indication: RHEUMATOID ARTHRITIS
  13. IBUPROFEN [Suspect]
     Indication: OSTEOARTHRITIS
     Dosage: UNK
     Dates: start: 20081030, end: 20110125
  14. IBUPROFEN [Suspect]
     Indication: RHEUMATOID ARTHRITIS
  15. LIPITOR [Concomitant]
     Indication: PRODUCT USED FOR UNKNOWN INDICATION
     Dosage: UNK
     Dates: start: 20050806
  16. INSPRA [Concomitant]
     Indication: PRODUCT USED FOR UNKNOWN INDICATION
     Dosage: UNK
     Dates: start: 20050806
  17. CELECOXIB [Suspect]
     Indication: OSTEOARTHRITIS
     Dosage: UNK
     Dates: start: 20081030, end: 20110125
  18. PLACEBO [Suspect]
     Indication: OSTEOARTHRITIS
     Dosage: UNK
     Dates: start: 20081030, end: 20110125
  19. NORVASC [Concomitant]
     Indication: PRODUCT USED FOR UNKNOWN INDICATION
     Dosage: UNK
     Dates: start: 20050806
  20. LOPRESSOR [Concomitant]
     Indication: PRODUCT USED FOR UNKNOWN INDICATION
     Dosage: UNK
     Dates: start: 20090625
  21. LOVENOX [Concomitant]
     Indication: PRODUCT USED FOR UNKNOWN INDICATION
     Dosage: UNK
     Dates: start: 20110419, end: 20110429
  22. PERCOCET [Suspect]
     Indication: PRODUCT USED FOR UNKNOWN INDICATION
     Dosage: 2 TABLET, Q3H
     Route: 048
     Dates: start: 20110418, end: 20110420

REACTIONS (3)
  - MULTIPLE DRUG OVERDOSE [None]
  - DELIRIUM [None]
  - OSTEOARTHRITIS [None]
